FAERS Safety Report 6922526-9 (Version None)
Quarter: 2010Q3

REPORT INFORMATION
  Report Type: 
  Country: None (occurrence: None)
  Receive Date: 20100813
  Receipt Date: 20100811
  Transmission Date: 20110219
  Serious: No
  Sender: FDA-Public Use
  Company Number: US-B.I. PHARMACEUTICALS,INC./RIDGEFIELD-2010-BP-07441BP

PATIENT
  Age: 76 Year
  Sex: Female
  Weight: 72.57 kg

DRUGS (14)
  1. CATAPRES-TTS-1 [Suspect]
     Indication: HYPERTENSION
     Dosage: 0.3 MG
     Route: 061
     Dates: start: 20100101, end: 20100715
  2. AMLODIPINE [Concomitant]
     Indication: BLOOD PRESSURE ABNORMAL
     Dosage: 10 MG
  3. COZAAR [Concomitant]
     Indication: BLOOD PRESSURE ABNORMAL
     Dosage: 100 MG
  4. CARVEDILOL [Concomitant]
     Indication: BLOOD PRESSURE ABNORMAL
     Dosage: 25 MG
  5. LEVOTHYROXINE [Concomitant]
     Dosage: 75 MCG
  6. CRESTOR [Concomitant]
     Dosage: 20 MG
  7. ASPIRIN [Concomitant]
     Dosage: 81 MG
  8. GLUCOSAMINE AND MSM [Concomitant]
  9. NERVE + OSTEO SUPPORT (MAGN + CALC) [Concomitant]
  10. COQ -10 [Concomitant]
     Dosage: 100 MG
  11. RXOMEGA-3 FACTORS (EPA 400MG/DHA 200MG) [Concomitant]
  12. FLAX OIL [Concomitant]
     Dosage: 1000 MG
  13. OCUVITE WITH LUTEIN [Concomitant]
  14. NORVASC [Concomitant]

REACTIONS (7)
  - APPLICATION SITE DERMATITIS [None]
  - BLOOD PRESSURE FLUCTUATION [None]
  - DIZZINESS [None]
  - ORTHOSTATIC HYPOTENSION [None]
  - PRURITUS [None]
  - RASH [None]
  - SKIN IRRITATION [None]
